FAERS Safety Report 22239925 (Version 1)
Quarter: 2023Q2

REPORT INFORMATION
  Report Type: Spontaneous
  Country: CN (occurrence: CN)
  Receive Date: 20230421
  Receipt Date: 20230421
  Transmission Date: 20230722
  Serious: Yes (Other)
  Sender: FDA-Public Use
  Company Number: None

PATIENT
  Age: 42 Year
  Sex: Male
  Weight: 50 kg

DRUGS (12)
  1. GLYCERIN\LECITHIN\MEDIUM-CHAIN TRIGLYCERIDES\SOYBEAN OIL [Suspect]
     Active Substance: GLYCERIN\LECITHIN\MEDIUM-CHAIN TRIGLYCERIDES\SOYBEAN OIL
     Indication: Parenteral nutrition
     Dosage: 250 MILLILITERS, ONCE DAILY, DOSAGE FORM: INJECTION
     Route: 041
     Dates: start: 20230316, end: 20230321
  2. GLYCERIN\LECITHIN\MEDIUM-CHAIN TRIGLYCERIDES\SOYBEAN OIL [Suspect]
     Active Substance: GLYCERIN\LECITHIN\MEDIUM-CHAIN TRIGLYCERIDES\SOYBEAN OIL
     Indication: Stress ulcer haemorrhage
  3. DEXTROSE [Suspect]
     Active Substance: DEXTROSE\DEXTROSE MONOHYDRATE
     Indication: Parenteral nutrition
     Dosage: 700 MILLILITERS (ML), ONCE DAILY (INJECTION)
     Route: 041
     Dates: start: 20230316, end: 20230321
  4. DEXTROSE [Suspect]
     Active Substance: DEXTROSE\DEXTROSE MONOHYDRATE
     Indication: Parenteral nutrition
     Dosage: 120 MILLILITERS, ONCE DAILY
     Route: 041
     Dates: start: 20230316, end: 20230321
  5. AMINO ACIDS, SOURCE UNSPECIFIED [Suspect]
     Active Substance: AMINO ACIDS, SOURCE UNSPECIFIED
     Indication: Parenteral nutrition
     Dosage: 500 MILLILITERS, ONCE DAILY (DOSAGE FORM: INJECTION)
     Route: 041
     Dates: start: 20230316, end: 20230321
  6. AMINO ACIDS, SOURCE UNSPECIFIED [Suspect]
     Active Substance: AMINO ACIDS, SOURCE UNSPECIFIED
     Indication: Stress ulcer haemorrhage
  7. VITAMINS [Suspect]
     Active Substance: VITAMINS
     Indication: Parenteral nutrition
     Dosage: AT AN UNSPECIFIED DOSE, ONCE DAILY, COMBINATION PACKAGE 1 BOX
     Route: 041
     Dates: start: 20230316, end: 20230321
  8. SODIUM CHLORIDE [Suspect]
     Active Substance: SODIUM CHLORIDE
     Indication: Parenteral nutrition
     Dosage: 30 MILLILITERS, ONCE DAILY
     Route: 041
     Dates: start: 20230316, end: 20230321
  9. POTASSIUM CHLORIDE [Suspect]
     Active Substance: POTASSIUM CHLORIDE
     Indication: Parenteral nutrition
     Dosage: 30 MILLILITERS, ONCE DAILY
     Route: 041
     Dates: start: 20230316, end: 20230321
  10. MAGNESIUM SULFATE [Suspect]
     Active Substance: MAGNESIUM SULFATE
     Indication: Parenteral nutrition
     Dosage: 4 MILLILITERS, ONCE DAILY
     Route: 041
     Dates: start: 20230316, end: 20230321
  11. CALCIUM GLUCONATE [Suspect]
     Active Substance: CALCIUM GLUCONATE
     Indication: Parenteral nutrition
     Dosage: 10 MILLILITERS, ONCE DAILY
     Route: 041
     Dates: start: 20230316, end: 20230321
  12. INSULIN NOS [Suspect]
     Active Substance: INSULIN NOS
     Indication: Parenteral nutrition
     Dosage: 20 IU, ONCE DAILY
     Route: 041
     Dates: start: 20230316, end: 20230321

REACTIONS (1)
  - Rash [Recovering/Resolving]

NARRATIVE: CASE EVENT DATE: 20230319
